FAERS Safety Report 6373939-8 (Version None)
Quarter: 2009Q3

REPORT INFORMATION
  Report Type: 
  Country: None (occurrence: None)
  Receive Date: 20090924
  Receipt Date: 20090710
  Transmission Date: 20100115
  Serious: Yes (Hospitalization)
  Sender: FDA-Public Use
  Company Number: US-ASTRAZENECA-2009UW12949

PATIENT
  Age: 58 Year
  Sex: Male
  Weight: 122.9 kg

DRUGS (2)
  1. SEROQUEL [Suspect]
     Indication: BIPOLAR DISORDER
     Route: 048
     Dates: start: 20070101
  2. DEXATRIM [Concomitant]
     Dates: start: 20000101

REACTIONS (4)
  - CARDIAC FAILURE CONGESTIVE [None]
  - HYPERTENSION [None]
  - SLEEP APNOEA SYNDROME [None]
  - TYPE 1 DIABETES MELLITUS [None]
